FAERS Safety Report 21208988 (Version 1)
Quarter: 2022Q3

REPORT INFORMATION
  Report Type: Spontaneous
  Country: ES (occurrence: ES)
  Receive Date: 20220812
  Receipt Date: 20220812
  Transmission Date: 20221027
  Serious: Yes (Hospitalization, Disabling)
  Sender: FDA-Public Use
  Company Number: ES-JNJFOC-20220822375

PATIENT
  Age: 30 Year
  Sex: Female

DRUGS (10)
  1. TRAMADOL HYDROCHLORIDE [Suspect]
     Active Substance: TRAMADOL HYDROCHLORIDE
     Indication: Plantar fasciitis
     Dosage: UNK
     Route: 065
  2. TRAMADOL HYDROCHLORIDE [Suspect]
     Active Substance: TRAMADOL HYDROCHLORIDE
     Indication: Tendonitis
  3. LYRICA [Suspect]
     Active Substance: PREGABALIN
     Indication: Tendonitis
     Dosage: UNK
     Route: 065
  4. LYRICA [Suspect]
     Active Substance: PREGABALIN
     Indication: Plantar fasciitis
  5. DICLOFENAC SODIUM [Suspect]
     Active Substance: DICLOFENAC SODIUM
     Indication: Tendonitis
     Dosage: UNK
     Route: 065
  6. DICLOFENAC SODIUM [Suspect]
     Active Substance: DICLOFENAC SODIUM
     Indication: Plantar fasciitis
  7. ACETAMINOPHEN [Suspect]
     Active Substance: ACETAMINOPHEN
     Indication: Tendonitis
     Dosage: UNK
     Route: 065
  8. ACETAMINOPHEN [Suspect]
     Active Substance: ACETAMINOPHEN
     Indication: Plantar fasciitis
  9. NAPROXEN [Suspect]
     Active Substance: NAPROXEN
     Indication: Tendonitis
     Dosage: UNK
     Route: 065
  10. NAPROXEN [Suspect]
     Active Substance: NAPROXEN
     Indication: Plantar fasciitis

REACTIONS (6)
  - Oedema peripheral [Unknown]
  - Gait disturbance [Unknown]
  - Foot deformity [Unknown]
  - Allodynia [Unknown]
  - Drug ineffective for unapproved indication [Unknown]
  - Off label use [Unknown]
